FAERS Safety Report 4794913-9 (Version None)
Quarter: 2005Q3

REPORT INFORMATION
  Report Type: 
  Country: None (occurrence: None)
  Receive Date: 20050914
  Receipt Date: 20040914
  Transmission Date: 20060218
  Serious: Yes (Hospitalization)
  Sender: FDA-Public Use
  Company Number: 163-20785-04090015

PATIENT
  Age: 76 Year
  Sex: Male

DRUGS (9)
  1. THALOMID [Suspect]
     Indication: MULTIPLE MYELOMA
     Dosage: 150 MG, AT BEDTIME, ORAL; 100 MG, AT BEDTIME, ORAL
     Route: 048
     Dates: start: 20040517, end: 20040804
  2. THALOMID [Suspect]
     Indication: MULTIPLE MYELOMA
     Dosage: 150 MG, AT BEDTIME, ORAL; 100 MG, AT BEDTIME, ORAL
     Route: 048
     Dates: start: 20040825
  3. DEXAMETHASONE [Suspect]
     Indication: MULTIPLE MYELOMA
     Dosage: 40 MG, DAYS 1 TO 4
     Dates: start: 20040517, end: 20040804
  4. DEXAMETHASONE [Suspect]
     Indication: MULTIPLE MYELOMA
     Dosage: 40 MG, DAYS 1 TO 4
     Dates: start: 20040825
  5. ZOMETA [Suspect]
     Indication: MULTIPLE MYELOMA
     Dosage: EVERY MONTH, INTRAVENOUS
     Route: 042
     Dates: start: 20040517, end: 20040804
  6. ZOMETA [Suspect]
     Indication: MULTIPLE MYELOMA
     Dosage: EVERY MONTH, INTRAVENOUS
     Route: 042
     Dates: start: 20040825
  7. SEPTRA DS [Concomitant]
  8. WARFARIN SODIUM [Concomitant]
  9. PROTONIX [Concomitant]

REACTIONS (4)
  - DEEP VEIN THROMBOSIS [None]
  - OEDEMA PERIPHERAL [None]
  - PNEUMONIA [None]
  - PULMONARY EMBOLISM [None]
